FAERS Safety Report 24735632 (Version 3)
Quarter: 2025Q1

REPORT INFORMATION
  Report Type: Spontaneous
  Country: JP (occurrence: JP)
  Receive Date: 20241216
  Receipt Date: 20250127
  Transmission Date: 20250409
  Serious: Yes (Hospitalization, Other)
  Sender: MERCK
  Company Number: JP-MSD-M2024-52239

PATIENT
  Age: 8 Decade
  Sex: Male

DRUGS (7)
  1. KEYTRUDA [Suspect]
     Active Substance: PEMBROLIZUMAB
     Indication: Bile duct cancer stage IV
     Dosage: 200 MILLIGRAM, Q3W
     Route: 041
     Dates: start: 202407, end: 20241111
  2. KEYTRUDA [Suspect]
     Active Substance: PEMBROLIZUMAB
     Dosage: 200 MILLIGRAM, Q3W
     Route: 041
     Dates: start: 20241216
  3. GEMCITABINE HYDROCHLORIDE [Suspect]
     Active Substance: GEMCITABINE HYDROCHLORIDE
     Indication: Bile duct cancer stage IV
     Route: 041
     Dates: start: 202407, end: 20241118
  4. GEMCITABINE HYDROCHLORIDE [Suspect]
     Active Substance: GEMCITABINE HYDROCHLORIDE
     Route: 041
     Dates: start: 20241216
  5. CISPLATIN [Suspect]
     Active Substance: CISPLATIN
     Indication: Bile duct cancer stage IV
     Route: 041
     Dates: start: 202407, end: 20241118
  6. CISPLATIN [Suspect]
     Active Substance: CISPLATIN
     Route: 041
     Dates: start: 20241216
  7. INFLUENZA VIRUS VACCINE [Suspect]
     Active Substance: INFLUENZA VIRUS VACCINE
     Route: 065
     Dates: start: 20241129, end: 20241129

REACTIONS (4)
  - Encephalopathy [Recovered/Resolved]
  - Dysarthria [Unknown]
  - Dizziness [Unknown]
  - Ammonia increased [Recovered/Resolved]

NARRATIVE: CASE EVENT DATE: 20241129
